FAERS Safety Report 7322498 (Version 38)
Quarter: 2018Q2

REPORT INFORMATION
  Report Type: Report from Study
  Country: CA (occurrence: CA)
  Receive Date: 20100317
  Receipt Date: 20180521
  Transmission Date: 20180711
  Serious: Yes (Other)
  Sender: FDA-Public Use
  Company Number: PHHY2009CA19642

PATIENT
  Age: 66 Year
  Sex: Male

DRUGS (12)
  1. PANTOLOC//PANTOPRAZOLE SODIUM SESQUIHYDRATE [Concomitant]
     Active Substance: PANTOPRAZOLE SODIUM
     Indication: PRODUCT USED FOR UNKNOWN INDICATION
     Dosage: UNK, QD (DIE)
     Route: 065
  2. GLYBURIDE. [Concomitant]
     Active Substance: GLYBURIDE
     Indication: PRODUCT USED FOR UNKNOWN INDICATION
     Dosage: 5 DF, QHS
     Route: 065
  3. ACTOS [Concomitant]
     Active Substance: PIOGLITAZONE HYDROCHLORIDE
     Indication: PRODUCT USED FOR UNKNOWN INDICATION
     Dosage: UNK, BID
     Route: 065
  4. SANDOSTATIN LAR DEPOT [Suspect]
     Active Substance: OCTREOTIDE ACETATE
     Dosage: 20 MG, QMO
     Route: 030
     Dates: start: 20120202
  5. SIMVASTATIN. [Suspect]
     Active Substance: SIMVASTATIN
     Indication: PRODUCT USED FOR UNKNOWN INDICATION
     Dosage: UNK, QD (DIE)
     Route: 065
  6. SANDOSTATIN LAR DEPOT [Suspect]
     Active Substance: OCTREOTIDE ACETATE
     Dosage: 10 MG, QMO (EVERY 4 WEEKS)
     Route: 030
     Dates: start: 20130710
  7. SANDOSTATIN LAR DEPOT [Suspect]
     Active Substance: OCTREOTIDE ACETATE
     Dosage: 20 MG, QMO
     Route: 030
     Dates: start: 20140522
  8. SANDOSTATIN LAR DEPOT [Suspect]
     Active Substance: OCTREOTIDE ACETATE
     Dosage: 30 MG, QMO (EVERY FOUR WEEKS)
     Route: 030
  9. ALTACE [Concomitant]
     Active Substance: RAMIPRIL
     Indication: PRODUCT USED FOR UNKNOWN INDICATION
     Route: 065
  10. SANDOSTATIN LAR DEPOT [Suspect]
     Active Substance: OCTREOTIDE ACETATE
     Indication: ACROMEGALY
     Dosage: 10 MG, QMO
     Route: 030
     Dates: start: 20071030
  11. MULTI VITAMIN [Concomitant]
     Active Substance: VITAMINS
     Indication: PRODUCT USED FOR UNKNOWN INDICATION
     Route: 065
  12. SANDOSTATIN LAR DEPOT [Suspect]
     Active Substance: OCTREOTIDE ACETATE
     Dosage: 20 MG, EVERY 4 WEEKS
     Route: 030
     Dates: start: 20150513

REACTIONS (38)
  - Nausea [Unknown]
  - Paranasal sinus discomfort [Unknown]
  - Ear pain [Unknown]
  - Pain [Recovered/Resolved]
  - Eye pain [Unknown]
  - Headache [Recovered/Resolved]
  - Asthenia [Unknown]
  - Diarrhoea [Unknown]
  - Arthralgia [Unknown]
  - Deafness unilateral [Unknown]
  - Body temperature decreased [Unknown]
  - Hip fracture [Unknown]
  - Decreased appetite [Unknown]
  - Blood growth hormone increased [Unknown]
  - Abdominal discomfort [Unknown]
  - Scar [Unknown]
  - Chills [Unknown]
  - Hiatus hernia [Unknown]
  - Headache [Unknown]
  - Blood glucose increased [Unknown]
  - Arthritis [Unknown]
  - Stress [Unknown]
  - Fall [Unknown]
  - Insomnia [Unknown]
  - Sinusitis [Unknown]
  - Rhinorrhoea [Unknown]
  - Blood pressure systolic increased [Unknown]
  - Osteoarthritis [Unknown]
  - Malaise [Unknown]
  - Muscle tightness [Unknown]
  - Gastroenteritis viral [Unknown]
  - Postoperative wound complication [Unknown]
  - Glycosylated haemoglobin increased [Unknown]
  - Sleep disorder [Recovered/Resolved]
  - Pyrexia [Unknown]
  - Lacrimation increased [Unknown]
  - Eye irritation [Unknown]
  - Blood pressure increased [Unknown]

NARRATIVE: CASE EVENT DATE: 2007
